FAERS Safety Report 9386299 (Version 1)
Quarter: 2013Q3

REPORT INFORMATION
  Report Type: Spontaneous
  Country: MA (occurrence: MA)
  Receive Date: 20130708
  Receipt Date: 20130708
  Transmission Date: 20140515
  Serious: Yes (Hospitalization)
  Sender: FDA-Public Use
  Company Number: MA-ROCHE-1245630

PATIENT
  Sex: Female

DRUGS (1)
  1. MABTHERA [Suspect]
     Indication: RHEUMATOID ARTHRITIS
     Dosage: 2 PERFUSIONS OF 1 G AT 15 DAYS INTERVAL
     Route: 042

REACTIONS (2)
  - Urticaria [Unknown]
  - Respiratory disorder [Unknown]
